FAERS Safety Report 10045922 (Version 2)
Quarter: 2014Q1

REPORT INFORMATION
  Report Type: Spontaneous
  Country: US (occurrence: US)
  Receive Date: 20140329
  Receipt Date: 20140329
  Transmission Date: 20141002
  Serious: Yes (Disabling)
  Sender: FDA-Public Use
  Company Number: US-GE HEALTHCARE MEDICAL DIAGNOSTICS-OSCN-PR-1008S-0218

PATIENT
  Age: 30 Year
  Sex: Female

DRUGS (4)
  1. OMNISCAN [Suspect]
     Indication: SPINAL FRACTURE
     Route: 042
     Dates: start: 20060815, end: 20060815
  2. OMNISCAN [Suspect]
     Indication: MASS
     Route: 042
     Dates: start: 20061024, end: 20061024
  3. OMNISCAN [Suspect]
     Indication: SPINAL FUSION SURGERY
     Route: 042
     Dates: start: 20070115, end: 20070115
  4. EPOGEN [Concomitant]

REACTIONS (1)
  - Nephrogenic systemic fibrosis [Not Recovered/Not Resolved]
